FAERS Safety Report 7302834-2 (Version None)
Quarter: 2011Q1

REPORT INFORMATION
  Report Type: 
  Country: None (occurrence: None)
  Receive Date: 20110218
  Receipt Date: 20110209
  Transmission Date: 20110831
  Serious: Yes (Hospitalization)
  Sender: FDA-Public Use
  Company Number: FR-ASTRAZENECA-2011SE08114

PATIENT
  Sex: Female

DRUGS (6)
  1. MABCAMPATH [Suspect]
     Route: 042
     Dates: start: 20100526, end: 20100901
  2. MABCAMPATH [Suspect]
     Route: 042
     Dates: start: 20101001, end: 20101201
  3. BACTRIM [Suspect]
     Route: 048
     Dates: end: 20101201
  4. ZELITREX [Suspect]
     Route: 048
     Dates: end: 20101201
  5. NEXIUM [Suspect]
     Route: 048
     Dates: end: 20101201
  6. IMOVANE [Suspect]
     Route: 048
     Dates: end: 20101201

REACTIONS (7)
  - ENCEPHALOPATHY [None]
  - PRODUCTIVE COUGH [None]
  - COGNITIVE DISORDER [None]
  - CONFUSIONAL STATE [None]
  - COMA [None]
  - SEPTIC SHOCK [None]
  - DISTURBANCE IN ATTENTION [None]
